FAERS Safety Report 19832406 (Version 1)
Quarter: 2021Q3

REPORT INFORMATION
  Report Type: Spontaneous
  Country: TR (occurrence: TR)
  Receive Date: 20210914
  Receipt Date: 20210914
  Transmission Date: 20211014
  Serious: Yes (Hospitalization, Other)
  Sender: FDA-Public Use
  Company Number: TR-009507513-2109TUR002168

PATIENT
  Age: 49 Year
  Sex: Male

DRUGS (2)
  1. PEMBROLIZUMAB. [Suspect]
     Active Substance: PEMBROLIZUMAB
     Indication: LARYNGEAL SQUAMOUS CELL CARCINOMA
     Dosage: 200 MG EVERY 3 WEEKS; TEN CYCLES
  2. CISPLATIN. [Concomitant]
     Active Substance: CISPLATIN
     Indication: LARYNGEAL SQUAMOUS CELL CARCINOMA
     Dosage: 200 MG EVERY 3 WEEKS; FOR THREE CYCLES

REACTIONS (5)
  - Primary hypothyroidism [Recovered/Resolved]
  - Pancreatitis acute [Recovered/Resolved]
  - Hepatitis [Recovered/Resolved]
  - Adrenocorticotropic hormone deficiency [Recovered/Resolved]
  - Immune-mediated hypophysitis [Recovered/Resolved]
